FAERS Safety Report 19597880 (Version 1)
Quarter: 2021Q3

REPORT INFORMATION
  Report Type: Spontaneous
  Country: US (occurrence: US)
  Receive Date: 20210723
  Receipt Date: 20210723
  Transmission Date: 20211014
  Serious: Yes (Other)
  Sender: FDA-Public Use
  Company Number: US-CADILA HEALTHCARE LIMITED-US-ZYDUS-067988

PATIENT

DRUGS (3)
  1. TEMOZOLOMIDE. [Suspect]
     Active Substance: TEMOZOLOMIDE
     Dosage: 200 MILLIGRAM/SQ. METER, QD, FOR 5 DAYS PER CYCLE EVERY 28 DAYS
     Route: 065
  2. TEMOZOLOMIDE. [Suspect]
     Active Substance: TEMOZOLOMIDE
     Dosage: 90 MILLIGRAM/SQ. METER, QD,42 DAYS CONSECUTIVELY STARTING ON DAY 1 OF RADIATION
     Route: 065
  3. TEMOZOLOMIDE. [Suspect]
     Active Substance: TEMOZOLOMIDE
     Indication: PRODUCT USED FOR UNKNOWN INDICATION
     Dosage: UNK,MAINTENANCE DOSE OF TEMOZOLOMIDE 20 MONTHS AFTER RESECTION
     Route: 065

REACTIONS (1)
  - Hypermutation [Unknown]
